FAERS Safety Report 6566791-9 (Version None)
Quarter: 2010Q1

REPORT INFORMATION
  Report Type: 
  Country: None (occurrence: None)
  Receive Date: 20100202
  Receipt Date: 20100121
  Transmission Date: 20100710
  Serious: Yes (Hospitalization)
  Sender: FDA-Public Use
  Company Number: US-WATSON-2010-00742

PATIENT
  Sex: Female
  Weight: 81.633 kg

DRUGS (1)
  1. NECON 1/35-28 (WATSON LABORATORIES) [Suspect]
     Indication: MENSTRUAL CYCLE MANAGEMENT
     Dosage: 1 TABLET DAILY
     Route: 048
     Dates: start: 20090401, end: 20091026

REACTIONS (14)
  - ABDOMINAL PAIN UPPER [None]
  - AORTIC THROMBOSIS [None]
  - BLOOD GLUCOSE INCREASED [None]
  - CHEST PAIN [None]
  - DECREASED APPETITE [None]
  - GASTROENTERITIS VIRAL [None]
  - HEPATIC ARTERY EMBOLISM [None]
  - INTESTINAL ISCHAEMIA [None]
  - MESENTERIC ARTERY EMBOLISM [None]
  - PAIN IN EXTREMITY [None]
  - PERIPHERAL EMBOLISM [None]
  - SKIN ULCER [None]
  - VOMITING [None]
  - WEIGHT DECREASED [None]
